FAERS Safety Report 9313043 (Version 1)
Quarter: 2013Q2

REPORT INFORMATION
  Report Type: Spontaneous
  Country: US (occurrence: US)
  Receive Date: 20130528
  Receipt Date: 20130528
  Transmission Date: 20140414
  Serious: No
  Sender: FDA-Public Use
  Company Number: US-ABBOTT-13P-163-1079858-00

PATIENT
  Age: 77 Year
  Sex: Male

DRUGS (1)
  1. ANDROGEL [Suspect]
     Indication: BLOOD TESTOSTERONE DECREASED
     Dosage: 3 PUMPS DAILY, IN THE EVENING
     Dates: start: 201303

REACTIONS (2)
  - Drug administration error [Not Recovered/Not Resolved]
  - Erythema [Not Recovered/Not Resolved]
